FAERS Safety Report 5819191-0 (Version None)
Quarter: 2008Q3

REPORT INFORMATION
  Report Type: 
  Country: None (occurrence: None)
  Receive Date: 20080723
  Receipt Date: 20080718
  Transmission Date: 20090109
  Serious: Yes (Hospitalization, Other)
  Sender: FDA-Public Use
  Company Number: B0529922A

PATIENT
  Age: 38 Year
  Sex: Male

DRUGS (3)
  1. AMOXICILLIN [Suspect]
  2. CLARITHROMYCIN [Suspect]
  3. PROTON PUMP INHIBITOR [Suspect]

REACTIONS (10)
  - ABDOMINAL PAIN [None]
  - ABSCESS [None]
  - C-REACTIVE PROTEIN INCREASED [None]
  - CACHEXIA [None]
  - COLITIS ULCERATIVE [None]
  - CONDITION AGGRAVATED [None]
  - DIARRHOEA [None]
  - HAEMATOCHEZIA [None]
  - MUCOUS STOOLS [None]
  - ULCER [None]
